FAERS Safety Report 23418891 (Version 1)
Quarter: 2024Q1

REPORT INFORMATION
  Report Type: Report from Study
  Country: US (occurrence: US)
  Receive Date: 20240118
  Receipt Date: 20240118
  Transmission Date: 20240409
  Serious: Yes (Death, Hospitalization, Other)
  Sender: FDA-Public Use
  Company Number: US-PFIZER INC-202300315064

PATIENT
  Age: 83 Year
  Sex: Female

DRUGS (1)
  1. IBRANCE [Suspect]
     Active Substance: PALBOCICLIB
     Dosage: 75 MG, CYCLIC (DAILY X 21 DAYS ON AND 7 DAYS OFF/ 1 DAILY DAYS 1-21, EVERY 28 DAYS )
     Route: 048
     Dates: start: 20190312, end: 20240111

REACTIONS (7)
  - Death [Fatal]
  - Seizure [Not Recovered/Not Resolved]
  - Atrial fibrillation [Unknown]
  - Fatigue [Unknown]
  - Hypersomnia [Unknown]
  - Feeling cold [Unknown]
  - Confusional state [Unknown]
